FAERS Safety Report 13792295 (Version 1)
Quarter: 2017Q3

REPORT INFORMATION
  Report Type: Spontaneous
  Country: DE (occurrence: DE)
  Receive Date: 20170726
  Receipt Date: 20170726
  Transmission Date: 20171127
  Serious: Yes (Life-Threatening, Hospitalization, Other)
  Sender: FDA-Public Use
  Company Number: DE-BRISTOL-MYERS SQUIBB COMPANY-BMS-2017-058549

PATIENT
  Age: 71 Year
  Sex: Male
  Weight: 80 kg

DRUGS (1)
  1. ELIQUIS [Suspect]
     Active Substance: APIXABAN
     Indication: CEREBROVASCULAR ACCIDENT PROPHYLAXIS
     Dosage: 5 MG, BID
     Route: 065
     Dates: end: 20170608

REACTIONS (7)
  - Duodenal ulcer [Recovering/Resolving]
  - Mallory-Weiss syndrome [Recovering/Resolving]
  - Helicobacter infection [Recovering/Resolving]
  - Upper gastrointestinal haemorrhage [Recovering/Resolving]
  - Gastric ulcer [Recovering/Resolving]
  - Fluid replacement [Unknown]
  - Gastritis [Unknown]

NARRATIVE: CASE EVENT DATE: 20170608
